FAERS Safety Report 18852951 (Version 4)
Quarter: 2022Q3

REPORT INFORMATION
  Report Type: Spontaneous
  Country: US (occurrence: US)
  Receive Date: 20210205
  Receipt Date: 20220812
  Transmission Date: 20221027
  Serious: Yes (Other)
  Sender: FDA-Public Use
  Company Number: US-PFIZER INC-2021106135

PATIENT
  Age: 79 Year
  Sex: Female

DRUGS (1)
  1. XELJANZ [Suspect]
     Active Substance: TOFACITINIB CITRATE
     Dosage: 5 MG

REACTIONS (7)
  - Chronic kidney disease [Unknown]
  - Type 2 diabetes mellitus [Unknown]
  - Corneal disorder [Unknown]
  - Myalgia [Unknown]
  - Pain [Unknown]
  - Hypoacusis [Unknown]
  - Fall [Unknown]
